FAERS Safety Report 8512624 (Version 3)
Quarter: 2012Q4

REPORT INFORMATION
  Report Type: 
  Country: US (occurrence: US)
  Receive Date: 20120413
  Receipt Date: 20121211
  Transmission Date: 20130627
  Serious: No
  Sender: FDA-Public Use
  Company Number: US-ASTRAZENECA-2011SE77190

PATIENT
  Age: 65 Year
  Sex: Female

DRUGS (7)
  1. NEXIUM [Suspect]
     Route: 048
  2. TOPROL XL [Suspect]
     Route: 048
  3. CRESTOR [Suspect]
     Route: 048
  4. NIASPAN [Suspect]
     Route: 065
  5. LEXAPRO [Concomitant]
  6. NEURONTIN [Concomitant]
  7. WELLBUTRIN [Concomitant]

REACTIONS (6)
  - Osteoporosis [Unknown]
  - Blood glucose increased [Unknown]
  - Blood cholesterol increased [Unknown]
  - Diabetes mellitus [Unknown]
  - Weight increased [Unknown]
  - Drug dose omission [Unknown]
